FAERS Safety Report 24693088 (Version 1)
Quarter: 2024Q4

REPORT INFORMATION
  Report Type: Spontaneous
  Country: CN (occurrence: CN)
  Receive Date: 20241203
  Receipt Date: 20241203
  Transmission Date: 20250115
  Serious: Yes (Other)
  Sender: BAYER HEALTHCARE PHARMACEUTICALS INC.
  Company Number: CN-BAYER-2024A169108

PATIENT

DRUGS (2)
  1. STIVARGA [Suspect]
     Active Substance: REGORAFENIB MONOHYDRATE
     Indication: Hepatic cancer
  2. TISLELIZUMAB [Concomitant]
     Active Substance: TISLELIZUMAB
     Indication: Hepatic cancer

REACTIONS (1)
  - Hepatic cancer [None]
